FAERS Safety Report 5034650-9 (Version None)
Quarter: 2006Q2

REPORT INFORMATION
  Report Type: 
  Country: None (occurrence: None)
  Receive Date: 20060621
  Receipt Date: 20060606
  Transmission Date: 20061013
  Serious: Yes (Life-Threatening, Hospitalization, Disabling)
  Sender: FDA-Public Use
  Company Number: 225503

PATIENT
  Age: 59 Year
  Sex: Female

DRUGS (1)
  1. RAPTIVA [Suspect]
     Indication: PSORIASIS
     Dosage: 1/WEEK, INTRAMUSCULAR
     Route: 030
     Dates: start: 20050412, end: 20060512

REACTIONS (3)
  - BACTERIAL INFECTION [None]
  - PNEUMONIA [None]
  - UROSEPSIS [None]
